FAERS Safety Report 22323292 (Version 1)
Quarter: 2023Q2

REPORT INFORMATION
  Report Type: Spontaneous
  Country: HR (occurrence: HR)
  Receive Date: 20230516
  Receipt Date: 20230516
  Transmission Date: 20230722
  Serious: Yes (Other)
  Sender: FDA-Public Use
  Company Number: HR-BAYER-2023A066825

PATIENT
  Age: 68 Year
  Sex: Male

DRUGS (1)
  1. EYLEA [Suspect]
     Active Substance: AFLIBERCEPT
     Indication: Neovascular age-related macular degeneration
     Dosage: UNK; SOLUTION FOR INJECTION; 40 MG/ML

REACTIONS (2)
  - Chronic lymphocytic leukaemia [Unknown]
  - Visual impairment [Unknown]
